FAERS Safety Report 24647892 (Version 1)
Quarter: 2024Q4

REPORT INFORMATION
  Report Type: Spontaneous
  Country: US (occurrence: US)
  Receive Date: 20241121
  Receipt Date: 20241121
  Transmission Date: 20250115
  Serious: Yes (Other)
  Sender: DR REDDYS
  Company Number: None

PATIENT
  Age: 30 Year
  Sex: Male

DRUGS (6)
  1. DOXORUBICIN [Suspect]
     Active Substance: DOXORUBICIN
     Indication: Desmoplastic small round cell tumour
     Dosage: ALTERNATING CYCLES/17-WEEK ALTERNATING CHEMOTHERAPY REGIMEN
  2. CYCLOPHOSPHAMIDE [Suspect]
     Active Substance: CYCLOPHOSPHAMIDE
     Indication: Desmoplastic small round cell tumour
     Dosage: ALTERNATING CYCLES/17-WEEK ALTERNATING CHEMOTHERAPY REGIMEN
  3. VINCRISTINE [Suspect]
     Active Substance: VINCRISTINE
     Indication: Desmoplastic small round cell tumour
     Dosage: ALTERNATING CYCLES/17-WEEK ALTERNATING CHEMOTHERAPY REGIMEN
  4. IFOSFAMIDE [Suspect]
     Active Substance: IFOSFAMIDE
     Indication: Desmoplastic small round cell tumour
     Dosage: ALTERNATING CYCLES/17-WEEK ALTERNATING CHEMOTHERAPY REGIMEN
  5. ETOPOSIDE [Suspect]
     Active Substance: ETOPOSIDE
     Indication: Desmoplastic small round cell tumour
     Dosage: ALTERNATING CYCLES/17-WEEK ALTERNATING CHEMOTHERAPY REGIMEN
  6. ACTINOMYCIN D [Suspect]
     Active Substance: DACTINOMYCIN
     Indication: Desmoplastic small round cell tumour
     Dosage: ALTERNATING CYCLES/17-WEEK ALTERNATING CHEMOTHERAPY REGIMEN

REACTIONS (1)
  - Myelosuppression [Unknown]
